FAERS Safety Report 4763242-1 (Version None)
Quarter: 2005Q3

REPORT INFORMATION
  Report Type: 
  Country: None (occurrence: None)
  Receive Date: 20050902
  Receipt Date: 20050822
  Transmission Date: 20060218
  Serious: Yes (Hospitalization)
  Sender: FDA-Public Use
  Company Number: HQWYE046522AUG05

PATIENT
  Age: 6 Year
  Sex: Female

DRUGS (4)
  1. PANTOZOL (PANTOPRAZOLE,) [Suspect]
     Dosage: 20 MG 2X PER 1 DAY
  2. AMPHO-MORONAL (AMPHOTERICIN B) [Concomitant]
  3. DIFLUCAN [Concomitant]
  4. MAGNESIUM VERLA (MAGNESIUM GLUTAMATE) [Concomitant]

REACTIONS (3)
  - CATHETER RELATED COMPLICATION [None]
  - JUGULAR VEIN DISTENSION [None]
  - VENA CAVA THROMBOSIS [None]
